FAERS Safety Report 8414408-0 (Version None)
Quarter: 2012Q2

REPORT INFORMATION
  Report Type: 
  Country: None (occurrence: None)
  Receive Date: 20120605
  Receipt Date: 20120523
  Transmission Date: 20120825
  Serious: Yes (Hospitalization)
  Sender: FDA-Public Use
  Company Number: CHPA2012US011450

PATIENT
  Sex: Female

DRUGS (1)
  1. BENEFIBER PLUS CALCIUM WITH WHEAT DEXTRIN [Suspect]
     Indication: NUTRITIONAL SUPPORT
     Dosage: 1 HEAPING TEASPOON, UNK
     Route: 048
     Dates: start: 20101101, end: 20120523

REACTIONS (2)
  - UNDERDOSE [None]
  - HEART RATE IRREGULAR [None]
